FAERS Safety Report 8959497 (Version 1)
Quarter: 2012Q4

REPORT INFORMATION
  Report Type: 
  Country: FR (occurrence: FR)
  Receive Date: 20121212
  Receipt Date: 20121212
  Transmission Date: 20130627
  Serious: Yes (Other)
  Sender: FDA-Public Use
  Company Number: FR-JNJFOC-20121204038

PATIENT
  Age: 19 Year
  Sex: Female

DRUGS (4)
  1. LEUSTATIN [Suspect]
     Indication: LANGERHANS^ CELL HISTIOCYTOSIS
     Dosage: treatment interval 7 years
     Route: 065
  2. VINBLASTINE [Suspect]
     Indication: LANGERHANS^ CELL HISTIOCYTOSIS
     Dosage: treatment interval 7 years
     Route: 065
  3. NAVELBINE [Suspect]
     Indication: LANGERHANS^ CELL HISTIOCYTOSIS
     Dosage: treatment interval 7 years
     Route: 065
  4. PURINETHOL [Suspect]
     Indication: LANGERHANS^ CELL HISTIOCYTOSIS
     Dosage: treatment interval 7 years
     Route: 065

REACTIONS (1)
  - Hodgkin^s disease [Recovered/Resolved]
